FAERS Safety Report 6998865-2 (Version None)
Quarter: 2010Q3

REPORT INFORMATION
  Report Type: 
  Country: None (occurrence: None)
  Receive Date: 20100920
  Receipt Date: 20100428
  Transmission Date: 20110219
  Serious: No
  Sender: FDA-Public Use
  Company Number: US-ASTRAZENECA-2010SE19507

PATIENT
  Age: 46 Year
  Sex: Female
  Weight: 104.3 kg

DRUGS (7)
  1. SEROQUEL [Suspect]
     Indication: BIPOLAR DISORDER
     Route: 048
  2. SEROQUEL [Suspect]
     Indication: DEPRESSION
     Route: 048
  3. SEROQUEL [Suspect]
     Route: 048
     Dates: start: 20080201
  4. SEROQUEL [Suspect]
     Route: 048
     Dates: start: 20080201
  5. NORVASC [Concomitant]
  6. UNKNOWN NEW DIABETIC DRUG [Concomitant]
  7. ARTHRITIS PAUN MED [Concomitant]

REACTIONS (12)
  - ARTHRITIS [None]
  - DIABETES MELLITUS [None]
  - DIPLOPIA [None]
  - DRUG DEPENDENCE [None]
  - EYE HAEMORRHAGE [None]
  - INCREASED APPETITE [None]
  - MANIA [None]
  - RASH [None]
  - SLEEP APNOEA SYNDROME [None]
  - VISION BLURRED [None]
  - VITREOUS FLOATERS [None]
  - WEIGHT INCREASED [None]
